FAERS Safety Report 16840671 (Version 1)
Quarter: 2019Q3

REPORT INFORMATION
  Report Type: Spontaneous
  Country: JP (occurrence: JP)
  Receive Date: 20190923
  Receipt Date: 20190923
  Transmission Date: 20191005
  Serious: Yes (Other)
  Sender: FDA-Public Use
  Company Number: JP-PFIZER INC-2019390391

PATIENT
  Sex: Female

DRUGS (2)
  1. ZITHROMAC 250MG [Suspect]
     Active Substance: AZITHROMYCIN DIHYDRATE
     Dosage: UNK
     Route: 048
     Dates: start: 20190902, end: 20190904
  2. ZITHROMAC 250MG [Suspect]
     Active Substance: AZITHROMYCIN DIHYDRATE
     Dosage: 2 DF, DAILY
     Route: 048
     Dates: start: 20190910

REACTIONS (3)
  - Osteomyelitis [Unknown]
  - Lymph gland infection [Unknown]
  - Therapeutic product effect incomplete [Unknown]
